FAERS Safety Report 23561471 (Version 1)
Quarter: 2024Q1

REPORT INFORMATION
  Report Type: Spontaneous
  Country: SE (occurrence: SE)
  Receive Date: 20240225
  Receipt Date: 20240225
  Transmission Date: 20240410
  Serious: Yes (Death, Life-Threatening, Hospitalization, Disabling)
  Sender: FDA-Public Use
  Company Number: SE-ROCHE-3456819

PATIENT
  Age: 79 Year
  Sex: Female
  Weight: 61.2 kg

DRUGS (22)
  1. CYCLOPHOSPHAMIDE [Suspect]
     Active Substance: CYCLOPHOSPHAMIDE
     Indication: Product used for unknown indication
     Dosage: UNK
     Route: 065
     Dates: start: 20230707
  2. DOXORUBICIN HYDROCHLORIDE [Suspect]
     Active Substance: DOXORUBICIN HYDROCHLORIDE
     Indication: Product used for unknown indication
     Dosage: UNK
     Route: 065
     Dates: start: 20230707
  3. EPCORITAMAB [Suspect]
     Active Substance: EPCORITAMAB
     Dosage: C1D1
     Route: 058
     Dates: start: 20210322, end: 20210322
  4. EPCORITAMAB [Suspect]
     Active Substance: EPCORITAMAB
     Dosage: C1D8
     Route: 058
     Dates: start: 20210329, end: 20210329
  5. EPCORITAMAB [Suspect]
     Active Substance: EPCORITAMAB
     Dosage: C1D15-C3D22 ON 24/JAN/2023, AT C25D1, THE PATIENT RECEIVED EPCORITAMAB AT 48 MG
     Route: 058
     Dates: start: 20210406, end: 20210608
  6. EPCORITAMAB [Suspect]
     Active Substance: EPCORITAMAB
     Indication: Follicular lymphoma stage IV
     Dosage: C10D1-C25D1ON 24/JAN/2023, AT C25D1, THE PATIENT RECEIVED EPCORITAMAB AT 48 MG.
     Route: 058
     Dates: start: 20211130, end: 20230124
  7. EPCORITAMAB [Suspect]
     Active Substance: EPCORITAMAB
     Dosage: C4D1-C9D15
     Route: 058
     Dates: start: 20210615, end: 20211116
  8. LENALIDOMIDE [Suspect]
     Active Substance: LENALIDOMIDE
     Indication: Product used for unknown indication
     Dosage: C1
     Route: 048
     Dates: start: 20210322, end: 20210411
  9. LENALIDOMIDE [Suspect]
     Active Substance: LENALIDOMIDE
     Dosage: C2
     Route: 048
     Dates: start: 20210420, end: 20210510
  10. LENALIDOMIDE [Suspect]
     Active Substance: LENALIDOMIDE
     Dosage: C3
     Route: 048
     Dates: start: 20210518, end: 20210531
  11. LENALIDOMIDE [Suspect]
     Active Substance: LENALIDOMIDE
     Dosage: C4
     Route: 048
     Dates: start: 20210615, end: 20210705
  12. LENALIDOMIDE [Suspect]
     Active Substance: LENALIDOMIDE
     Dosage: C5
     Route: 048
     Dates: start: 20210714, end: 20210802
  13. LENALIDOMIDE [Suspect]
     Active Substance: LENALIDOMIDE
     Dosage: C6
     Route: 048
     Dates: start: 20210810, end: 20210830
  14. LENALIDOMIDE [Suspect]
     Active Substance: LENALIDOMIDE
     Dosage: C7
     Route: 048
     Dates: start: 20210907, end: 20210927
  15. LENALIDOMIDE [Suspect]
     Active Substance: LENALIDOMIDE
     Dosage: C8
     Route: 048
     Dates: start: 20211005, end: 20211025
  16. LENALIDOMIDE [Suspect]
     Active Substance: LENALIDOMIDE
     Dosage: C9ON 22/NOV/2021, THE PATIENT RECEIVED THE LAST DOSE LENALIDOMIDE AT 10 MG.
     Route: 048
     Dates: start: 20211102, end: 20211122
  17. PREDNISONE [Suspect]
     Active Substance: PREDNISONE
     Indication: Product used for unknown indication
     Dosage: UNK
     Route: 065
     Dates: start: 20230707
  18. RITUXIMAB [Suspect]
     Active Substance: RITUXIMAB
     Dosage: C1D1-C1D22
     Route: 042
     Dates: start: 20210322, end: 20210413
  19. RITUXIMAB [Suspect]
     Active Substance: RITUXIMAB
     Indication: Follicular lymphoma stage IV
     Dosage: C2D1-C5D1ON 13/JUL/2021, AT C5D1, THE PATIENT RECEIVED THE LAST DOSE OF RITUXIMAB AT 375 MG/M2 PER P
     Route: 042
     Dates: start: 20210420, end: 20210713
  20. VINCRISTINE SULFATE [Suspect]
     Active Substance: VINCRISTINE SULFATE
     Indication: Product used for unknown indication
     Dosage: UNK
     Route: 065
     Dates: start: 20230707
  21. OMEPRAZOLE [Concomitant]
     Active Substance: OMEPRAZOLE
     Indication: Product used for unknown indication
     Dosage: UNK
     Route: 065
     Dates: start: 20210316
  22. ZOLPIDEM [Concomitant]
     Active Substance: ZOLPIDEM TARTRATE
     Indication: Product used for unknown indication
     Dosage: UNK
     Route: 065
     Dates: start: 20220222

REACTIONS (1)
  - Progressive multifocal leukoencephalopathy [Fatal]

NARRATIVE: CASE EVENT DATE: 20231019
